FAERS Safety Report 8449463-5 (Version None)
Quarter: 2012Q2

REPORT INFORMATION
  Report Type: 
  Country: None (occurrence: None)
  Receive Date: 20120619
  Receipt Date: 20120608
  Transmission Date: 20120825
  Serious: Yes (Other)
  Sender: FDA-Public Use
  Company Number: FR-TEVA-342899ISR

PATIENT
  Sex: Male

DRUGS (10)
  1. AZILECT [Suspect]
     Indication: PARKINSON'S DISEASE
     Dosage: 1 MILLIGRAM;
     Route: 048
     Dates: end: 20120402
  2. CYMBALTA [Concomitant]
     Dates: end: 20120402
  3. MOVIPREP [Concomitant]
  4. SINEMET [Suspect]
     Indication: PARKINSON'S DISEASE
     Dosage: 100 MG/ 25 MG
     Route: 048
     Dates: start: 20010101
  5. LYRICA [Concomitant]
     Dates: end: 20120402
  6. OMEPRAZOLE [Concomitant]
     Dates: end: 20120402
  7. DIHYDROERGOTAMINE MESYLATE [Concomitant]
     Dates: end: 20120402
  8. ACETAMINOPHEN [Concomitant]
  9. SINEMET [Suspect]
     Dosage: 200 MG/ 50 MG, DAILY: 800 MG/ 200 MG
     Route: 048
     Dates: start: 20010101
  10. MIDODRINE HYDROCHLORIDE [Concomitant]
     Dates: end: 20120402

REACTIONS (5)
  - PSEUDOPHAEOCHROMOCYTOMA [None]
  - HYPERHIDROSIS [None]
  - HYPERTENSION [None]
  - VISION BLURRED [None]
  - FLUSHING [None]
